FAERS Safety Report 8043562 (Version 6)
Quarter: 2013Q1

REPORT INFORMATION
  Report Type: Spontaneous
  Country: US (occurrence: US)
  Receive Date: 20110719
  Receipt Date: 20130320
  Transmission Date: 20140127
  Serious: Yes (Congenital Anomaly, Other)
  Sender: FDA-Public Use
  Company Number: US-PFIZER INC-2011158664

PATIENT
  Sex: Male
  Weight: 2 kg

DRUGS (23)
  1. ZOLOFT [Suspect]
     Indication: DEPRESSION
     Dosage: 50 MG, 1X/DAY
     Route: 064
     Dates: start: 2004, end: 200701
  2. ZOLOFT [Suspect]
     Indication: ANXIETY DISORDER
     Dosage: 100 MG, 1X/DAY
     Route: 064
     Dates: start: 20070105, end: 200704
  3. ZOLOFT [Suspect]
     Indication: PANIC DISORDER
  4. ZANTAC [Concomitant]
     Dosage: 150 MG, 2X/DAY
     Route: 064
     Dates: start: 20061206
  5. SYNTHROID [Concomitant]
     Dosage: 0.025 MG, 1X/DAY
     Route: 064
     Dates: start: 20070105
  6. GYNAZOLE [Concomitant]
     Dosage: 1 APPLICATION PER VAGINAL AT NIGHT
     Route: 064
     Dates: start: 20060829
  7. METRONIDAZOLE [Concomitant]
     Dosage: 250 MG, 3X/DAY
     Route: 064
     Dates: start: 20061024
  8. METRONIDAZOLE [Concomitant]
     Dosage: 500 MG, 2X/DAY
     Route: 064
     Dates: start: 20061209
  9. ALLEGRA [Concomitant]
     Dosage: 180 MG, 1X/DAY
     Route: 064
     Dates: start: 20061206
  10. PRENATE ELITE [Concomitant]
     Dosage: 1 TABLET ONCE DAILY
     Route: 064
     Dates: start: 20060926
  11. LEVOTHYROXINE [Concomitant]
     Dosage: 0.25 MG, 1X/DAY
     Route: 064
     Dates: start: 20060926
  12. LEVOTHYROXINE [Concomitant]
     Dosage: 25 UG, 1X/DAY
     Route: 064
     Dates: start: 20061219
  13. CIPRODEX [Concomitant]
     Dosage: INSTILLED 5 DROPS IN LEFT EAR TWICE A DAY
     Route: 064
     Dates: start: 20061117
  14. FLAGYL [Concomitant]
     Dosage: 250 MG, 3X/DAY
     Route: 064
     Dates: start: 20061024
  15. TYLENOL [Concomitant]
     Dosage: UNK
     Route: 064
  16. FLUCONAZOLE [Concomitant]
     Dosage: UNK
     Route: 064
  17. AMOXICILLIN [Concomitant]
     Dosage: UNK
     Route: 064
  18. LEVAQUIN [Concomitant]
     Dosage: UNK
     Route: 064
  19. VANDAZOLE [Concomitant]
     Dosage: UNK
     Route: 064
  20. NITROFURANTOIN [Concomitant]
     Dosage: UNK
     Route: 064
  21. TERCONAZOLE [Concomitant]
     Dosage: UNK
     Route: 064
  22. VICODIN [Concomitant]
     Dosage: UNK
     Route: 064
  23. SMZ-TMP [Concomitant]
     Dosage: UNK
     Route: 064

REACTIONS (6)
  - Maternal exposure timing unspecified [Unknown]
  - Talipes [Recovering/Resolving]
  - Ankyloglossia congenital [Unknown]
  - Congenital pneumonia [Unknown]
  - Penile adhesion [Unknown]
  - Congenital anomaly [Unknown]
